FAERS Safety Report 5038616-4 (Version None)
Quarter: 2006Q2

REPORT INFORMATION
  Report Type: 
  Country: None (occurrence: None)
  Receive Date: 20060628
  Receipt Date: 20060628
  Transmission Date: 20061013
  Serious: Yes (Other)
  Sender: FDA-Public Use
  Company Number: None

PATIENT
  Age: 32 Year
  Sex: Female
  Weight: 89.8122 kg

DRUGS (2)
  1. EFFEXOR [Suspect]
     Indication: ANXIETY
     Dosage: 75 ONE A DAY PO
     Route: 048
     Dates: start: 20050401, end: 20060625
  2. EFFEXOR [Suspect]
     Indication: DEPRESSION
     Dosage: 75 ONE A DAY PO
     Route: 048
     Dates: start: 20050401, end: 20060625

REACTIONS (13)
  - CONFUSIONAL STATE [None]
  - DISTURBANCE IN ATTENTION [None]
  - DIZZINESS [None]
  - IMPAIRED DRIVING ABILITY [None]
  - IMPAIRED WORK ABILITY [None]
  - MALAISE [None]
  - MOOD SWINGS [None]
  - PAIN [None]
  - PARAESTHESIA [None]
  - PERFORMANCE STATUS DECREASED [None]
  - THINKING ABNORMAL [None]
  - VOMITING [None]
  - WEIGHT INCREASED [None]
